FAERS Safety Report 22129442 (Version 1)
Quarter: 2023Q1

REPORT INFORMATION
  Report Type: Spontaneous
  Country: SE (occurrence: SE)
  Receive Date: 20230323
  Receipt Date: 20230323
  Transmission Date: 20230417
  Serious: Yes (Hospitalization, Other)
  Sender: FDA-Public Use
  Company Number: None

PATIENT
  Age: 20 Year
  Sex: Female

DRUGS (4)
  1. FLUOXETINE [Suspect]
     Active Substance: FLUOXETINE HYDROCHLORIDE
     Indication: Product used for unknown indication
     Dates: start: 20230129
  2. PARAFLEX [Suspect]
     Active Substance: CHLORZOXAZONE
     Indication: Product used for unknown indication
     Dates: start: 20230129
  3. CAFFEINE\EPHEDRINE\PROMETHAZINE [Suspect]
     Active Substance: CAFFEINE\EPHEDRINE\PROMETHAZINE
     Indication: Product used for unknown indication
     Dates: start: 20230129
  4. PHENYLPROPANOLAMINE [Suspect]
     Active Substance: PHENYLPROPANOLAMINE
     Indication: Product used for unknown indication
     Dates: start: 20230129

REACTIONS (2)
  - Suicide attempt [Recovering/Resolving]
  - Intentional overdose [Recovering/Resolving]

NARRATIVE: CASE EVENT DATE: 20230129
